FAERS Safety Report 8764757 (Version 1)
Quarter: 2012Q4

REPORT INFORMATION
  Report Type: 
  Country: CN (occurrence: CN)
  Receive Date: 20120831
  Receipt Date: 20120831
  Transmission Date: 20130627
  Serious: Yes (Hospitalization)
  Sender: FDA-Public Use
  Company Number: CN-ROCHE-CID000000002130282

PATIENT
  Age: 1 Year
  Sex: Male
  Weight: 8 kg

DRUGS (2)
  1. ROCEPHIN [Suspect]
     Indication: SEPSIS
     Route: 041
     Dates: start: 20090428, end: 20090428
  2. AMBROXOL [Concomitant]
     Indication: PRODUCTIVE COUGH
     Route: 041
     Dates: start: 20090428, end: 20090428

REACTIONS (4)
  - Pallor [Recovering/Resolving]
  - Dysphoria [Recovering/Resolving]
  - Chromaturia [Recovering/Resolving]
  - Haemoglobin decreased [Recovering/Resolving]
